FAERS Safety Report 14112651 (Version 1)
Quarter: 2017Q4

REPORT INFORMATION
  Report Type: Spontaneous
  Country: DE (occurrence: DE)
  Receive Date: 20171021
  Receipt Date: 20171021
  Transmission Date: 20180321
  Serious: Yes (Congenital Anomaly, Other)
  Sender: FDA-Public Use
  Company Number: DE-TORRENT-00007240

PATIENT
  Age: 1 Day
  Sex: Male
  Weight: 3 kg

DRUGS (5)
  1. FOLSAEURE [Concomitant]
     Active Substance: FOLIC ACID
  2. PROTAPHANE [Concomitant]
     Active Substance: INSULIN HUMAN
  3. QUETIAPINE. [Suspect]
     Active Substance: QUETIAPINE
  4. GRIPPEIMPFSTOFF [Concomitant]
     Active Substance: INFLUENZA VIRUS VACCINE
  5. ACTRAPID [Concomitant]
     Active Substance: INSULIN HUMAN

REACTIONS (6)
  - Foetal exposure during pregnancy [Unknown]
  - Feeling jittery [Recovered/Resolved]
  - Drug withdrawal syndrome neonatal [Recovered/Resolved]
  - Oxygen saturation decreased [Recovered/Resolved]
  - Restlessness [Recovered/Resolved]
  - Pyelocaliectasis [Unknown]

NARRATIVE: CASE EVENT DATE: 20160313
